FAERS Safety Report 8921302 (Version 2)
Quarter: 2016Q1

REPORT INFORMATION
  Report Type: Spontaneous
  Country: IT (occurrence: IT)
  Receive Date: 20121122
  Receipt Date: 20160212
  Transmission Date: 20160526
  Serious: Yes (Life-Threatening, Hospitalization, Other)
  Sender: FDA-Public Use
  Company Number: IT-BRISTOL-MYERS SQUIBB COMPANY-17123977

PATIENT
  Age: 40 Year
  Sex: Male

DRUGS (3)
  1. MODITEN DEPOT - 25 MG/1 ML SOLUZIONE INIETTABILE A RILASCIO PROLUNGATO [Suspect]
     Active Substance: FLUPHENAZINE HYDROCHLORIDE
     Indication: SCHIZOPHRENIA
     Dosage: 25 MG, QD
     Route: 030
     Dates: start: 20120927, end: 20121010
  2. ABILIFY [Suspect]
     Active Substance: ARIPIPRAZOLE
     Indication: PRODUCT USED FOR UNKNOWN INDICATION
     Dosage: 15 MG, UNK
     Route: 048
     Dates: start: 20120925, end: 20121010
  3. ENTUMINE [Suspect]
     Active Substance: CLOTHIAPINE
     Indication: PRODUCT USED FOR UNKNOWN INDICATION
     Dosage: 100 MG, UNK
     Route: 048
     Dates: start: 20120925, end: 20121010

REACTIONS (3)
  - Seizure [Unknown]
  - Coma [Unknown]
  - Off label use [Unknown]

NARRATIVE: CASE EVENT DATE: 20121010
